FAERS Safety Report 22282439 (Version 2)
Quarter: 2023Q2

REPORT INFORMATION
  Report Type: Spontaneous
  Country: US (occurrence: US)
  Receive Date: 20230504
  Receipt Date: 20230628
  Transmission Date: 20230722
  Serious: Yes (Hospitalization, Other)
  Sender: FDA-Public Use
  Company Number: US-BRISTOL-MYERS SQUIBB COMPANY-2023-060209

PATIENT
  Age: 60 Year
  Sex: Male
  Weight: 104.33 kg

DRUGS (2)
  1. POMALYST [Suspect]
     Active Substance: POMALIDOMIDE
     Indication: Plasma cell myeloma
     Dosage: 21D OF 28D
     Route: 048
     Dates: start: 20230301
  2. POMALYST [Suspect]
     Active Substance: POMALIDOMIDE
     Dosage: 3 WKS ON, 1 WK OFF
     Route: 048

REACTIONS (3)
  - Confusional state [Recovering/Resolving]
  - Renal impairment [Recovering/Resolving]
  - Gait disturbance [Recovering/Resolving]
